FAERS Safety Report 8435573-5 (Version None)
Quarter: 2012Q2

REPORT INFORMATION
  Report Type: 
  Country: None (occurrence: None)
  Receive Date: 20120608
  Receipt Date: 20120531
  Transmission Date: 20120825
  Serious: Yes (Hospitalization, Other)
  Sender: FDA-Public Use
  Company Number: 2012SP018061

PATIENT
  Age: 63 Year
  Sex: Female
  Weight: 49 kg

DRUGS (12)
  1. REBETOL [Suspect]
     Indication: HEPATITIS C
     Dosage: 200 MG;QD;PO
     Route: 048
     Dates: start: 20120206, end: 20120227
  2. ZETIA [Concomitant]
  3. TALION [Concomitant]
  4. PEG-INTRON [Suspect]
     Indication: HEPATITIS C
     Dosage: 1.5 MCG/KG;QW;SC 1.1 MCG/KG;QW;SC
     Route: 058
     Dates: start: 20120302, end: 20120308
  5. PEG-INTRON [Suspect]
     Indication: HEPATITIS C
     Dosage: 1.5 MCG/KG;QW;SC 1.1 MCG/KG;QW;SC
     Route: 058
     Dates: start: 20120409
  6. PEG-INTRON [Suspect]
     Indication: HEPATITIS C
     Dosage: 1.5 MCG/KG;QW;SC 1.1 MCG/KG;QW;SC
     Route: 058
     Dates: start: 20120206, end: 20120227
  7. TELAVIC (ANTIVIRALS NOS) [Suspect]
     Indication: HEPATITIS C
     Dosage: 1500 MG;QD;PO
     Route: 048
     Dates: start: 20120203, end: 20120227
  8. PATANOL [Concomitant]
  9. LENDORMIN [Concomitant]
  10. LOXONIN [Concomitant]
  11. RESTAMIN [Concomitant]
  12. THYROID PREPARATIONS [Concomitant]

REACTIONS (11)
  - INSOMNIA [None]
  - FACE OEDEMA [None]
  - THROMBOCYTOPENIA [None]
  - VOMITING [None]
  - RENAL IMPAIRMENT [None]
  - WEIGHT INCREASED [None]
  - DRUG ERUPTION [None]
  - ANAEMIA [None]
  - PYREXIA [None]
  - PRURITUS [None]
  - EYE PRURITUS [None]
